FAERS Safety Report 11097330 (Version 1)
Quarter: 2015Q2

REPORT INFORMATION
  Report Type: Spontaneous
  Country: CN (occurrence: CN)
  Receive Date: 20150507
  Receipt Date: 20150507
  Transmission Date: 20150821
  Serious: Yes (Hospitalization)
  Sender: FDA-Public Use
  Company Number: PHHY2015CN051179

PATIENT
  Age: 42 Year

DRUGS (5)
  1. GENTAMICIN. [Concomitant]
     Active Substance: GENTAMICIN
     Indication: INCISION SITE INFECTION
     Route: 065
  2. VORICONAZOLE. [Suspect]
     Active Substance: VORICONAZOLE
     Indication: ASPERGILLUS INFECTION
     Route: 048
  3. PENICILLIN                         /02215301/ [Concomitant]
     Active Substance: PENICILLIN
     Indication: INCISION SITE INFECTION
     Route: 065
  4. CEPHALOSPORIN C [Concomitant]
     Active Substance: CEPHALOSPORIN C
     Indication: INCISION SITE INFECTION
     Route: 065
  5. FLUCONAZOLE. [Concomitant]
     Active Substance: FLUCONAZOLE
     Indication: INCISION SITE INFECTION
     Route: 065

REACTIONS (3)
  - Daydreaming [Unknown]
  - Depression [Unknown]
  - Apathy [Unknown]
